FAERS Safety Report 12769710 (Version 1)
Quarter: 2016Q3

REPORT INFORMATION
  Report Type: Spontaneous
  Country: US (occurrence: US)
  Receive Date: 20160922
  Receipt Date: 20160922
  Transmission Date: 20161109
  Serious: No
  Sender: FDA-Public Use
  Company Number: US-DEXPHARM-20161927

PATIENT
  Age: 56 Year
  Sex: Female
  Weight: 58.05 kg

DRUGS (6)
  1. LOSARTAN. [Concomitant]
     Active Substance: LOSARTAN
     Dates: start: 2015
  2. OMEPRAZOLE DELAYED RELEASE [Suspect]
     Active Substance: OMEPRAZOLE
     Indication: GASTROOESOPHAGEAL REFLUX DISEASE
     Dosage: ONE TABLET- HALF TABLET EVERY NIGHT
     Route: 048
     Dates: start: 20160819, end: 20160828
  3. BUPROPION. [Concomitant]
     Active Substance: BUPROPION
     Dates: start: 1986
  4. SYNTHROID [Concomitant]
     Active Substance: LEVOTHYROXINE SODIUM
     Dates: start: 201603
  5. MYRBETRIQ [Suspect]
     Active Substance: MIRABEGRON
     Indication: HYPERTONIC BLADDER
     Dosage: LESS THEN 50MG ONCE DAILY
     Dates: start: 20160823
  6. ACYCLOVIR. [Concomitant]
     Active Substance: ACYCLOVIR
     Dates: start: 1990

REACTIONS (1)
  - Dysuria [Recovered/Resolved]

NARRATIVE: CASE EVENT DATE: 20160819
